FAERS Safety Report 6745073-6 (Version None)
Quarter: 2010Q2

REPORT INFORMATION
  Report Type: 
  Country: None (occurrence: None)
  Receive Date: 20100527
  Receipt Date: 20100521
  Transmission Date: 20101027
  Serious: Yes (Other)
  Sender: FDA-Public Use
  Company Number: US-MERCK-1005USA03126

PATIENT
  Age: 4 Year
  Sex: Male

DRUGS (5)
  1. SINGULAIR [Suspect]
     Indication: ASTHMA
     Route: 048
     Dates: start: 20100101, end: 20100316
  2. SINGULAIR [Suspect]
     Route: 048
     Dates: start: 20080301, end: 20100101
  3. SINGULAIR [Suspect]
     Indication: HYPERSENSITIVITY
     Route: 048
     Dates: start: 20100101, end: 20100316
  4. SINGULAIR [Suspect]
     Route: 048
     Dates: start: 20080301, end: 20100101
  5. PREDNISONE [Concomitant]
     Route: 065

REACTIONS (12)
  - ABNORMAL BEHAVIOUR [None]
  - AGGRESSION [None]
  - ANGER [None]
  - ENURESIS [None]
  - FRUSTRATION [None]
  - HYPERSOMNIA [None]
  - MOOD SWINGS [None]
  - PARANOIA [None]
  - PHYSICAL ASSAULT [None]
  - RESTLESSNESS [None]
  - SLEEP DISORDER [None]
  - SUICIDAL IDEATION [None]
